FAERS Safety Report 7555169-7 (Version None)
Quarter: 2011Q2

REPORT INFORMATION
  Report Type: 
  Country: None (occurrence: None)
  Receive Date: 20110617
  Receipt Date: 20110531
  Transmission Date: 20111010
  Serious: Yes (Other)
  Sender: FDA-Public Use
  Company Number: US-MYLANLABS-2011S1011380

PATIENT
  Age: 68 Year
  Sex: Female
  Weight: 63.5 kg

DRUGS (11)
  1. LEVOTHYROXINE SODIUM [Concomitant]
     Indication: HYPOTHYROIDISM
  2. HYDROCODONE BITARTRATE AND ACETAMINOPHEN [Concomitant]
     Indication: BACK PAIN
     Dosage: 5MG/325MG
     Dates: start: 20110101
  3. DIVALPROEX SODIUM [Concomitant]
     Indication: BIPOLAR DISORDER
     Dates: start: 20090101
  4. ASPIRIN [Concomitant]
  5. NAMENDA [Concomitant]
     Indication: AMNESIA
     Dates: start: 20070101
  6. CYCLOBENZAPRINE [Concomitant]
     Indication: MUSCLE RELAXANT THERAPY
     Dates: start: 20110101
  7. CALCIUM CARBONATE [Concomitant]
  8. MULTI-VITAMIN [Concomitant]
  9. DIVALPROEX SODIUM [Concomitant]
     Dates: start: 20090101
  10. SIMVASTATIN [Concomitant]
     Indication: BLOOD CHOLESTEROL INCREASED
  11. RISPERIDONE [Suspect]
     Indication: MOOD ALTERED
     Route: 048
     Dates: start: 20110201

REACTIONS (1)
  - CHEST PAIN [None]
